FAERS Safety Report 8312618-4 (Version None)
Quarter: 2012Q2

REPORT INFORMATION
  Report Type: 
  Country: None (occurrence: None)
  Receive Date: 20120424
  Receipt Date: 20120417
  Transmission Date: 20120825
  Serious: Yes (Death)
  Sender: FDA-Public Use
  Company Number: DSA_56216_2012

PATIENT
  Sex: Female

DRUGS (1)
  1. XENAZINE [Suspect]
     Indication: CHOREA
     Dosage: (12.5 MG, 2   TO 3 TIMES DAILY ORAL)
     Route: 048
     Dates: start: 20100105, end: 20120416

REACTIONS (1)
  - DEATH [None]
